FAERS Safety Report 24266512 (Version 1)
Quarter: 2024Q3

REPORT INFORMATION
  Report Type: Spontaneous
  Country: US (occurrence: US)
  Receive Date: 20240830
  Receipt Date: 20240830
  Transmission Date: 20241017
  Serious: Yes (Hospitalization, Other)
  Sender: HIKMA
  Company Number: US-HIKMA PHARMACEUTICALS USA INC.-US-H14001-24-05672

PATIENT
  Age: 16 Year
  Sex: Male
  Weight: 93.1 kg

DRUGS (10)
  1. MERCAPTOPURINE [Suspect]
     Active Substance: MERCAPTOPURINE
     Dosage: 100 MILLIGRAM, SINGLE, SUN
     Route: 048
     Dates: start: 20220118, end: 20220118
  2. MERCAPTOPURINE [Suspect]
     Active Substance: MERCAPTOPURINE
     Indication: Acute lymphocytic leukaemia
     Dosage: 75 MILLIGRAM, QD, MON-SAT
     Route: 048
     Dates: start: 20220118, end: 20240515
  3. MERCAPTOPURINE [Suspect]
     Active Substance: MERCAPTOPURINE
     Dosage: 50% DOSING
     Route: 048
     Dates: start: 20240516, end: 20240530
  4. METHOTREXATE [Suspect]
     Active Substance: METHOTREXATE
     Indication: Acute lymphocytic leukaemia
     Dosage: 20 MILLIGRAM, WEEKLY
     Route: 048
     Dates: start: 20220118, end: 20240515
  5. METHOTREXATE [Suspect]
     Active Substance: METHOTREXATE
     Dosage: 50% DOSING
     Route: 048
     Dates: start: 20240516, end: 20240530
  6. PREDNISOLONE [Suspect]
     Active Substance: PREDNISOLONE
     Dosage: 40 MILLIGRAM, QD, D1-5, D29-33, D57-61; IN EVENING
     Route: 048
     Dates: start: 20221107
  7. PREDNISOLONE [Suspect]
     Active Substance: PREDNISOLONE
     Indication: Acute lymphocytic leukaemia
     Dosage: 45 MILLIGRAM, QD, D1-5, D29-33, D57-61; IN MORNING
     Route: 048
     Dates: start: 20221107
  8. RUXOLITINIB [Suspect]
     Active Substance: RUXOLITINIB
     Indication: Acute lymphocytic leukaemia
     Dosage: 100 MILLIGRAM, BID, D1-7
     Route: 048
     Dates: start: 20220118
  9. VINCRISTINE [Suspect]
     Active Substance: VINCRISTINE
     Indication: Acute lymphocytic leukaemia
     Dosage: 2 MILLIGRAM, D1, D29, D57
     Route: 042
     Dates: start: 20230201
  10. DIFLUCAN [Concomitant]
     Active Substance: FLUCONAZOLE
     Indication: Product used for unknown indication
     Dosage: UNK
     Route: 065
     Dates: start: 20240516

REACTIONS (3)
  - Epistaxis [Recovered/Resolved]
  - Platelet count decreased [Recovered/Resolved with Sequelae]
  - Anaemia [Recovered/Resolved with Sequelae]

NARRATIVE: CASE EVENT DATE: 20240529
